FAERS Safety Report 5144375-7 (Version None)
Quarter: 2006Q4

REPORT INFORMATION
  Report Type: 
  Country: None (occurrence: None)
  Receive Date: 20061030
  Receipt Date: 20061017
  Transmission Date: 20070319
  Serious: Yes (Other)
  Sender: FDA-Public Use
  Company Number: 2006127354

PATIENT
  Sex: Male
  Weight: 81.6475 kg

DRUGS (5)
  1. NORVASC [Suspect]
     Indication: HYPERTENSION
     Dosage: 5 MG (5 MG, FREQUENCY: QD INTERVAL; EVERYDAY), SEE IMAGE
  2. ATENOLOL [Concomitant]
  3. ADVICOR (LOVASTATIN) [Concomitant]
  4. GABAPENTIN [Concomitant]
  5. NIACIN [Concomitant]

REACTIONS (1)
  - INTERVERTEBRAL DISC PROTRUSION [None]
